FAERS Safety Report 7687151-3 (Version None)
Quarter: 2011Q3

REPORT INFORMATION
  Report Type: 
  Country: None (occurrence: None)
  Receive Date: 20110816
  Receipt Date: 20110805
  Transmission Date: 20111222
  Serious: Yes (Other)
  Sender: FDA-Public Use
  Company Number: GB-BAXTER-2011BH025814

PATIENT
  Sex: Male
  Weight: 54 kg

DRUGS (13)
  1. FORTISIP [Concomitant]
     Indication: PRODUCT USED FOR UNKNOWN INDICATION
     Route: 065
  2. DIANEAL [Suspect]
     Indication: PERITONEAL DIALYSIS
     Route: 033
     Dates: start: 20050201, end: 20071201
  3. EXTRANEAL [Suspect]
     Route: 033
     Dates: start: 20090601, end: 20100116
  4. EXTRANEAL [Suspect]
     Indication: PERITONEAL DIALYSIS
     Route: 033
     Dates: start: 20050201, end: 20071201
  5. DIANEAL [Suspect]
     Route: 033
     Dates: start: 20080201, end: 20090501
  6. EXTRANEAL [Suspect]
     Route: 033
     Dates: start: 20050201, end: 20071201
  7. EXTRANEAL [Suspect]
     Route: 033
     Dates: start: 20080201, end: 20090501
  8. DIANEAL [Suspect]
     Route: 033
     Dates: start: 20090601, end: 20100116
  9. DIANEAL [Suspect]
     Route: 033
     Dates: start: 20090601, end: 20100116
  10. DIANEAL [Suspect]
     Route: 033
     Dates: start: 20050201, end: 20071201
  11. DIANEAL [Suspect]
     Route: 033
     Dates: start: 20080201, end: 20090501
  12. EXTRANEAL [Suspect]
     Route: 033
     Dates: start: 20090601, end: 20100116
  13. EXTRANEAL [Suspect]
     Route: 033
     Dates: start: 20080201, end: 20090501

REACTIONS (1)
  - SCLEROSING ENCAPSULATING PERITONITIS [None]
